FAERS Safety Report 20664676 (Version 8)
Quarter: 2025Q4

REPORT INFORMATION
  Report Type: Report from Study
  Country: EU (occurrence: EU)
  Receive Date: 20220401
  Receipt Date: 20251030
  Transmission Date: 20260117
  Serious: Yes (Hospitalization, Other)
  Sender: PFIZER
  Company Number: EU-002147023-NVSC2022DE062703

PATIENT
  Sex: Male

DRUGS (17)
  1. METHOTREXATE SODIUM [Suspect]
     Active Substance: METHOTREXATE SODIUM
     Dosage: 10 MG, WEEKLY
     Route: 065
  2. METHOTREXATE SODIUM [Suspect]
     Active Substance: METHOTREXATE SODIUM
     Dosage: 15 MG, WEEKLY
     Route: 065
  3. ERELZI [Suspect]
     Active Substance: ETANERCEPT-SZZS
     Indication: Rheumatoid arthritis
     Dosage: 50 MG, QW (EVERY 7 DAYS)
     Route: 065
     Dates: start: 202105
  4. ERELZI [Suspect]
     Active Substance: ETANERCEPT-SZZS
     Dosage: 50 MG
     Route: 065
     Dates: start: 202105
  5. ERELZI [Suspect]
     Active Substance: ETANERCEPT-SZZS
     Dosage: 50 MG
     Route: 065
     Dates: start: 202202
  6. ERELZI [Suspect]
     Active Substance: ETANERCEPT-SZZS
     Dosage: 50 MG, QW (UNTIL 01APR2024)
     Route: 065
  7. ERELZI [Suspect]
     Active Substance: ETANERCEPT-SZZS
     Dosage: 50 MG
     Route: 065
  8. ERELZI [Suspect]
     Active Substance: ETANERCEPT-SZZS
     Dosage: 50 MG
     Route: 065
     Dates: start: 202404
  9. ERELZI [Suspect]
     Active Substance: ETANERCEPT-SZZS
     Dosage: 50 MG
     Route: 065
  10. ERELZI [Suspect]
     Active Substance: ETANERCEPT-SZZS
     Dosage: 50 MG
     Route: 065
  11. ORENCIA [Suspect]
     Active Substance: ABATACEPT
     Dosage: 125 MG
     Route: 065
     Dates: start: 202006
  12. ORENCIA [Suspect]
     Active Substance: ABATACEPT
     Dosage: 125 MG
     Route: 065
     Dates: start: 202210
  13. ORENCIA [Suspect]
     Active Substance: ABATACEPT
     Dosage: 125 MG
     Route: 065
     Dates: start: 202012, end: 202102
  14. ENOXAPARIN SODIUM [Concomitant]
     Active Substance: ENOXAPARIN SODIUM
     Dosage: UNK
     Route: 065
  15. FOLIC ACID [Concomitant]
     Active Substance: FOLIC ACID
     Dosage: 5 MG, QW
     Route: 065
  16. ALENDRONIC ACID [Concomitant]
     Active Substance: ALENDRONIC ACID
     Dosage: 70 MG, QW
     Route: 065
  17. LEVOTHYROXINE SODIUM [Concomitant]
     Active Substance: LEVOTHYROXINE SODIUM
     Dosage: 50 UG, QD
     Route: 065

REACTIONS (14)
  - Non-small cell lung cancer metastatic [Not Recovered/Not Resolved]
  - Rheumatoid arthritis [Recovered/Resolved]
  - Joint swelling [Unknown]
  - Deep vein thrombosis [Unknown]
  - Arthralgia [Unknown]
  - Peripheral arterial occlusive disease [Unknown]
  - Peripheral venous disease [Unknown]
  - Peripheral arterial occlusive disease [Unknown]
  - Reactive gastropathy [Unknown]
  - Tinea pedis [Not Recovered/Not Resolved]
  - Diverticulitis [Unknown]
  - Aortic aneurysm [Not Recovered/Not Resolved]
  - Duodenitis [Unknown]
  - Hypertension [Unknown]

NARRATIVE: CASE EVENT DATE: 20211001
